FAERS Safety Report 8249191-5 (Version None)
Quarter: 2012Q1

REPORT INFORMATION
  Report Type: 
  Country: None (occurrence: None)
  Receive Date: 20120314
  Receipt Date: 20120305
  Transmission Date: 20120608
  Serious: Yes (Other)
  Sender: FDA-Public Use
  Company Number: 2012031517

PATIENT
  Age: 54 Year
  Sex: Female
  Weight: 60.782 kg

DRUGS (18)
  1. SEROQUEL [Concomitant]
  2. BETHANECHOL [Concomitant]
  3. FENOFIBRATE [Concomitant]
  4. CLINDINIUM CHLORDIAZEPOXIDE (CHLORDIAZEPOXIDE W/CLIDINIUM) [Concomitant]
  5. MULTIVITAM (ACCOMIN MULTIVITAMIN) [Concomitant]
  6. HIZENTRA [Suspect]
     Indication: HYPOGAMMAGLOBULINAEMIA
     Dosage: 4 G 1X/WEEK, 4 GM 20 ML; 20 ML IN 3 SITES OVER 1-2 HOURS, SUBCUTANEOUS
     Route: 058
     Dates: start: 20110414
  7. PERCOCET [Concomitant]
  8. FORTEO [Concomitant]
  9. SINGULAIR [Concomitant]
  10. ADVAIR HFA [Concomitant]
  11. ALTACE [Concomitant]
  12. PRAVASTATIN [Concomitant]
  13. MORPHINE SULFATE [Concomitant]
  14. BACLOFEN [Concomitant]
  15. ALBUTEROL [Concomitant]
  16. CALCIUM + D (CALCIUM D3) [Concomitant]
  17. ESTRADIOL [Concomitant]
  18. VALTREX [Concomitant]

REACTIONS (1)
  - PNEUMONIA [None]
